FAERS Safety Report 7059483-3 (Version None)
Quarter: 2010Q4

REPORT INFORMATION
  Report Type: 
  Country: None (occurrence: None)
  Receive Date: 20101025
  Receipt Date: 20101015
  Transmission Date: 20110411
  Serious: Yes (Other)
  Sender: FDA-Public Use
  Company Number: US-JNJFOC-20101005179

PATIENT
  Sex: Female
  Weight: 55.34 kg

DRUGS (17)
  1. DURAGESIC-100 [Suspect]
     Indication: PAIN
     Route: 062
  2. DURAGESIC-100 [Suspect]
     Route: 062
  3. DURAGESIC-100 [Suspect]
     Route: 062
  4. FENTANYL CITRATE [Suspect]
     Indication: PAIN
     Route: 062
  5. WELLBUTRIN [Concomitant]
     Indication: ANXIETY
     Route: 048
  6. WELLBUTRIN [Concomitant]
     Indication: DEPRESSION
     Route: 048
  7. ATENOLOL [Concomitant]
     Indication: SUPRAVENTRICULAR TACHYCARDIA
     Route: 048
  8. ATENOLOL [Concomitant]
     Indication: HYPERTENSION
     Route: 048
  9. PROVIGIL [Concomitant]
     Indication: FATIGUE
     Route: 048
  10. ZOCOR [Concomitant]
     Indication: BLOOD CHOLESTEROL
     Dosage: AT BEDTIME
     Route: 048
  11. AMBIEN [Concomitant]
     Indication: SLEEP DISORDER THERAPY
     Dosage: 10 MG AT BED TIME
     Route: 048
  12. FOSAMAX [Concomitant]
     Indication: BONE DENSITY DECREASED
     Dosage: WEEKLY
     Route: 048
  13. MICARDIS [Concomitant]
     Indication: CARDIAC DISORDER
     Route: 048
  14. LORAZEPAM [Concomitant]
     Indication: ANXIETY
     Route: 048
  15. VICODIN [Concomitant]
     Indication: BREAKTHROUGH PAIN
     Dosage: 5/500 MG AS NEEDED
     Route: 048
  16. VESICARE [Concomitant]
     Indication: BLADDER SPASM
     Route: 048
  17. MACRODANTIN [Concomitant]
     Indication: CYSTITIS
     Route: 048

REACTIONS (6)
  - BREAKTHROUGH PAIN [None]
  - DRUG INEFFECTIVE [None]
  - EYE INJURY [None]
  - GLAUCOMA [None]
  - PRODUCT ADHESION ISSUE [None]
  - PRODUCT QUALITY ISSUE [None]
